FAERS Safety Report 5755889-0 (Version None)
Quarter: 2008Q2

REPORT INFORMATION
  Report Type: 
  Country: None (occurrence: None)
  Receive Date: 20080528
  Receipt Date: 20080508
  Transmission Date: 20081010
  Serious: Yes (Death)
  Sender: FDA-Public Use
  Company Number: 2008AL004266

PATIENT
  Age: 78 Year
  Sex: Male
  Weight: 58.9676 kg

DRUGS (1)
  1. DIGOXIN [Suspect]
     Dosage: 0.125 MG ORAL
     Route: 048

REACTIONS (1)
  - DEATH [None]
